FAERS Safety Report 12603595 (Version 1)
Quarter: 2016Q3

REPORT INFORMATION
  Report Type: Spontaneous
  Country: IT (occurrence: IT)
  Receive Date: 20160728
  Receipt Date: 20160728
  Transmission Date: 20161109
  Serious: Yes (Other)
  Sender: FDA-Public Use
  Company Number: IT-GILEAD-2016-0224763

PATIENT
  Age: 55 Year
  Sex: Male

DRUGS (12)
  1. VIDAZA [Suspect]
     Active Substance: AZACITIDINE
     Indication: CHRONIC MYELOMONOCYTIC LEUKAEMIA
     Route: 058
  2. DAKLINZA [Suspect]
     Active Substance: DACLATASVIR
     Indication: CHRONIC HEPATITIS C
     Dosage: 1 DF, QD
     Route: 048
  3. TACHIDOL [Concomitant]
     Active Substance: ACETAMINOPHEN\CODEINE PHOSPHATE
  4. SOVALDI [Suspect]
     Active Substance: SOFOSBUVIR
     Indication: CHRONIC HEPATITIS C
     Dosage: 1 DF, QD
     Route: 048
  5. ADENURIC [Concomitant]
     Active Substance: FEBUXOSTAT
  6. LUVION                             /00252501/ [Concomitant]
     Active Substance: CANRENONE
  7. DEURSIL [Concomitant]
     Active Substance: URSODIOL
  8. EPOETIN ALFA [Concomitant]
     Active Substance: ERYTHROPOIETIN
  9. PANTOPRAZOL [Concomitant]
     Active Substance: PANTOPRAZOLE SODIUM
  10. ONCO CARBIDE [Concomitant]
     Active Substance: HYDROXYUREA
  11. DIBASE [Concomitant]
     Active Substance: CHOLECALCIFEROL
  12. SOVALDI [Suspect]
     Active Substance: SOFOSBUVIR
     Dosage: 1 DF, QD
     Route: 048

REACTIONS (1)
  - Vomiting [Recovering/Resolving]

NARRATIVE: CASE EVENT DATE: 20160530
